FAERS Safety Report 10602080 (Version 2)
Quarter: 2015Q1

REPORT INFORMATION
  Report Type: Spontaneous
  Country: US (occurrence: US)
  Receive Date: 20141124
  Receipt Date: 20150202
  Transmission Date: 20150720
  Serious: Yes (Life-Threatening, Hospitalization)
  Sender: FDA-Public Use
  Company Number: US-BAYER-2014-172378

PATIENT
  Age: 19 Year
  Sex: Female
  Weight: 68.27 kg

DRUGS (8)
  1. MIRENA [Suspect]
     Active Substance: LEVONORGESTREL
     Indication: CONTRACEPTION
     Dosage: 20 MCG/24HR, CONT
     Route: 015
     Dates: start: 20080208, end: 20120404
  2. WELLBUTRIN [Concomitant]
     Active Substance: BUPROPION HYDROCHLORIDE
     Indication: ABDOMINAL PAIN
     Dosage: UNK
     Route: 048
  3. HYDROCODONE [Concomitant]
     Active Substance: HYDROCODONE
     Indication: ABDOMINAL PAIN
  4. LEVOFLOXACIN. [Concomitant]
     Active Substance: LEVOFLOXACIN
  5. DILAUDID [Concomitant]
     Active Substance: HYDROMORPHONE HYDROCHLORIDE
  6. CITALOPRAM [Concomitant]
     Active Substance: CITALOPRAM HYDROBROMIDE
     Indication: ABDOMINAL PAIN
     Dosage: UNK
     Route: 048
     Dates: start: 20111130
  7. IBUPROFEN. [Concomitant]
     Active Substance: IBUPROFEN
     Indication: ABDOMINAL PAIN
  8. NORCO [Concomitant]
     Active Substance: ACETAMINOPHEN\HYDROCODONE BITARTRATE

REACTIONS (12)
  - Abdominal pain lower [Recovered/Resolved]
  - General physical health deterioration [Recovered/Resolved]
  - Irritability [None]
  - Uterine perforation [Recovered/Resolved]
  - Pelvic pain [Recovered/Resolved]
  - Anxiety [None]
  - Injury [Recovered/Resolved]
  - Anhedonia [None]
  - Depression [None]
  - Device issue [None]
  - Mood altered [None]
  - Emotional distress [None]

NARRATIVE: CASE EVENT DATE: 200805
